FAERS Safety Report 9888838 (Version 1)
Quarter: 2014Q1

REPORT INFORMATION
  Report Type: Spontaneous
  Country: US (occurrence: US)
  Receive Date: 20140211
  Receipt Date: 20140211
  Transmission Date: 20141002
  Serious: Yes (Other)
  Sender: FDA-Public Use
  Company Number: US-JNJFOC-20140205203

PATIENT
  Sex: 0

DRUGS (13)
  1. DOXORUBICIN [Suspect]
     Indication: LYMPHOMA
     Route: 042
  2. CYCLOPHOSPHAMIDE [Suspect]
     Indication: LYMPHOMA
     Route: 065
  3. VINCRISTINE [Suspect]
     Indication: LYMPHOMA
     Route: 065
  4. PREDNISONE [Suspect]
     Indication: LYMPHOMA
     Route: 065
  5. DEXAMETHASONE [Suspect]
     Indication: LYMPHOMA
     Route: 065
  6. CYTARABINE [Suspect]
     Indication: LYMPHOMA
     Route: 065
  7. METHOTREXATE [Suspect]
     Indication: LYMPHOMA
     Route: 065
  8. BLEOMYCIN [Suspect]
     Indication: LYMPHOMA
     Route: 065
  9. VINBLASTINE [Suspect]
     Indication: LYMPHOMA
     Route: 065
  10. DACARBAZINE [Suspect]
     Indication: LYMPHOMA
     Route: 065
  11. METHYLPREDNISOLONE [Suspect]
     Indication: LYMPHOMA
     Route: 065
  12. CISPLATIN [Suspect]
     Indication: LYMPHOMA
     Route: 065
  13. ENOXAPARIN [Suspect]
     Indication: EMBOLISM VENOUS
     Route: 065

REACTIONS (3)
  - Embolism [Unknown]
  - Platelet count decreased [Unknown]
  - Deep vein thrombosis [Unknown]
